FAERS Safety Report 7048902-4 (Version None)
Quarter: 2010Q4

REPORT INFORMATION
  Report Type: 
  Country: None (occurrence: None)
  Receive Date: 20101018
  Receipt Date: 20101006
  Transmission Date: 20110411
  Serious: Yes (Other)
  Sender: FDA-Public Use
  Company Number: ES-ELI_LILLY_AND_COMPANY-ES201010001070

PATIENT
  Sex: Female
  Weight: 49 kg

DRUGS (8)
  1. FORTEO [Suspect]
     Indication: OSTEOPOROSIS
     Dosage: 20 UG, DAILY (1/D)
     Route: 058
     Dates: start: 20090103
  2. NIFEDIPINE [Concomitant]
     Dosage: 1 D/F, DAILY (1/D)
     Route: 048
  3. METFORMIN [Concomitant]
     Dosage: 250 MG, 2/D
     Route: 048
  4. ASPIRIN [Concomitant]
     Indication: THROMBOSIS PROPHYLAXIS
     Dosage: 100 MG, DAILY (1/D)
     Route: 048
  5. SIMVASTATIN [Concomitant]
     Indication: HYPERLIPIDAEMIA
     Dosage: 20 MG, DAILY (1/D)
     Route: 048
  6. TRAMADOL HCL [Concomitant]
     Indication: PAIN
     Dosage: 50 MG, 4/D
     Route: 048
  7. OMEPRAZOLE [Concomitant]
     Indication: ABDOMINAL DISCOMFORT
     Dosage: 20 MG, DAILY (1/D)
     Route: 048
  8. PARACETAMOL [Concomitant]
     Indication: PAIN
     Dosage: UNK, AS NEEDED
     Route: 048

REACTIONS (3)
  - ARTHRALGIA [None]
  - MOBILITY DECREASED [None]
  - MUSCULOSKELETAL PAIN [None]
